FAERS Safety Report 10548152 (Version 1)
Quarter: 2014Q4

REPORT INFORMATION
  Report Type: Spontaneous
  Country: US (occurrence: US)
  Receive Date: 20141028
  Receipt Date: 20141028
  Transmission Date: 20150529
  Serious: Yes (Death)
  Sender: FDA-Public Use
  Company Number: US-PFIZER INC-2014294617

PATIENT
  Age: 52 Year
  Sex: Male

DRUGS (1)
  1. INLYTA [Suspect]
     Active Substance: AXITINIB
     Indication: RENAL CANCER
     Dosage: 6 MG, 2X/DAY
     Route: 048
     Dates: start: 20131031

REACTIONS (1)
  - Death [Fatal]

NARRATIVE: CASE EVENT DATE: 20141017
